FAERS Safety Report 7950769-4 (Version None)
Quarter: 2011Q4

REPORT INFORMATION
  Report Type: 
  Country: None (occurrence: None)
  Receive Date: 20111201
  Receipt Date: 20111121
  Transmission Date: 20120403
  Serious: Yes (Other)
  Sender: FDA-Public Use
  Company Number: US-BAYER-2011-112569

PATIENT
  Age: 58 Year
  Sex: Female

DRUGS (1)
  1. CLIMARA PRO [Suspect]
     Indication: OSTEOPOROSIS POSTMENOPAUSAL
     Dosage: UNK
     Route: 062
     Dates: start: 20110701

REACTIONS (3)
  - PRODUCT ADHESION ISSUE [None]
  - FEELING ABNORMAL [None]
  - POSTMENOPAUSAL HAEMORRHAGE [None]
